FAERS Safety Report 7548541-2 (Version None)
Quarter: 2011Q2

REPORT INFORMATION
  Report Type: 
  Country: None (occurrence: None)
  Receive Date: 20110608
  Receipt Date: 20110523
  Transmission Date: 20111010
  Serious: Yes (Life-Threatening, Other)
  Sender: FDA-Public Use
  Company Number: FK201101064

PATIENT
  Age: 62 Year
  Sex: Female
  Weight: 134.7183 kg

DRUGS (3)
  1. ONDANSETRON [Suspect]
     Indication: PROPHYLAXIS OF NAUSEA AND VOMITING
  2. SUCCINYLCHOLINE CHLORIDE [Suspect]
     Indication: PRODUCT USED FOR UNKNOWN INDICATION
  3. GENERAL ANAESTHESIA [Suspect]
     Indication: GENERAL ANAESTHESIA

REACTIONS (4)
  - SINUS BRADYCARDIA [None]
  - VENTRICULAR TACHYCARDIA [None]
  - INCISION SITE HAEMORRHAGE [None]
  - CARDIAC ARREST [None]
